FAERS Safety Report 9733973 (Version 2)
Quarter: 2013Q4

REPORT INFORMATION
  Report Type: Spontaneous
  Country: GB (occurrence: GB)
  Receive Date: 20131205
  Receipt Date: 20131218
  Transmission Date: 20140711
  Serious: Yes (Other)
  Sender: FDA-Public Use
  Company Number: PHFR2013GB006891

PATIENT
  Age: 78 Year
  Sex: Male

DRUGS (4)
  1. VALSARTAN [Suspect]
     Dosage: UNK UKN, UNK
  2. VALSARTAN [Suspect]
     Dosage: UNK UKN, UNK
  3. AMLODIPINE [Suspect]
     Dosage: UNK UKN, UNK
  4. AMLODIPINE [Suspect]
     Dosage: UNK UKN, UNK

REACTIONS (5)
  - Transient ischaemic attack [Unknown]
  - Blood pressure increased [Recovering/Resolving]
  - Dysgeusia [Unknown]
  - Malaise [Unknown]
  - Drug ineffective [Unknown]
